FAERS Safety Report 25312671 (Version 2)
Quarter: 2025Q3

REPORT INFORMATION
  Report Type: Other
  Country: US (occurrence: US)
  Receive Date: 20250514
  Receipt Date: 20250921
  Transmission Date: 20251021
  Serious: No
  Sender: TRAVERE THERAPEUTICS
  Company Number: US-TRAVERE-2025TVT00611

PATIENT
  Sex: Male

DRUGS (1)
  1. FILSPARI [Suspect]
     Active Substance: SPARSENTAN
     Indication: IgA nephropathy
     Route: 048
     Dates: start: 202503

REACTIONS (9)
  - Arthralgia [Unknown]
  - Fatigue [Unknown]
  - Fall [Unknown]
  - Weight increased [Unknown]
  - Taste disorder [Unknown]
  - Candida infection [Unknown]
  - Skin exfoliation [Unknown]
  - Skin atrophy [Unknown]
  - Skin irritation [Unknown]
